FAERS Safety Report 9010502 (Version 3)
Quarter: 2013Q1

REPORT INFORMATION
  Report Type: Spontaneous
  Country: US (occurrence: US)
  Receive Date: 20130109
  Receipt Date: 20130218
  Transmission Date: 20140127
  Serious: No
  Sender: FDA-Public Use
  Company Number: US-BAYER-2013-003004

PATIENT
  Age: 38 Year
  Sex: Female

DRUGS (2)
  1. MIRENA [Suspect]
     Indication: CONTRACEPTION
     Dosage: 20 MCG/24HR, CONT
     Route: 015
     Dates: start: 20121022, end: 20130108
  2. DOXYCYCLINE [Suspect]
     Indication: VAGINAL ODOUR
     Dosage: 100 MG, BID

REACTIONS (37)
  - Drug hypersensitivity [None]
  - Urticaria [None]
  - Rash pruritic [None]
  - Ear swelling [None]
  - Dermatitis [None]
  - Pruritus [None]
  - Lip swelling [None]
  - Swollen tongue [None]
  - Urticaria [None]
  - Eye swelling [None]
  - Alopecia [Recovered/Resolved]
  - Vaginal odour [Not Recovered/Not Resolved]
  - Off label use [None]
  - Drug hypersensitivity [None]
  - Urticaria [Not Recovered/Not Resolved]
  - Rash pruritic [Not Recovered/Not Resolved]
  - Ear swelling [Not Recovered/Not Resolved]
  - Dermatitis [Not Recovered/Not Resolved]
  - Pruritus [Not Recovered/Not Resolved]
  - Lip swelling [Not Recovered/Not Resolved]
  - Swollen tongue [Not Recovered/Not Resolved]
  - Urticaria [Not Recovered/Not Resolved]
  - Eye swelling [Not Recovered/Not Resolved]
  - Rash [Not Recovered/Not Resolved]
  - Urticaria [Not Recovered/Not Resolved]
  - Urticaria [Not Recovered/Not Resolved]
  - Urticaria [Not Recovered/Not Resolved]
  - Urticaria [Not Recovered/Not Resolved]
  - Pruritus [Not Recovered/Not Resolved]
  - Urticaria [Not Recovered/Not Resolved]
  - Acne [Recovering/Resolving]
  - Device difficult to use [None]
  - Local swelling [Not Recovered/Not Resolved]
  - Local swelling [Not Recovered/Not Resolved]
  - Eyelid oedema [Not Recovered/Not Resolved]
  - Urticaria [Not Recovered/Not Resolved]
  - Urticaria [Not Recovered/Not Resolved]
